FAERS Safety Report 8461219 (Version 2)
Quarter: 2013Q1

REPORT INFORMATION
  Report Type: Report from Study
  Country: DE (occurrence: DE)
  Receive Date: 20120315
  Receipt Date: 20130118
  Transmission Date: 20140127
  Serious: Yes (Hospitalization)
  Sender: FDA-Public Use
  Company Number: DE-ROCHE-1045699

PATIENT
  Age: 75 Year
  Sex: Male
  Weight: 88 kg

DRUGS (3)
  1. PEG-INTERFERON ALFA 2A [Suspect]
     Indication: CHRONIC HEPATITIS C
     Route: 058
     Dates: start: 20111011
  2. RIBAVIRIN [Suspect]
     Indication: CHRONIC HEPATITIS C
     Route: 048
     Dates: start: 20111011
  3. TELAPREVIR [Suspect]
     Indication: CHRONIC HEPATITIS C
     Dosage: LAST DOSE PRIOR TO SAE 05/JAN/2012
     Route: 048
     Dates: start: 20111011, end: 20120105

REACTIONS (8)
  - Pyrexia [Recovered/Resolved]
  - Prostatitis [Recovered/Resolved]
  - Anaemia [Unknown]
  - Thrombocytopenia [Recovering/Resolving]
  - Leukopenia [Recovered/Resolved]
  - Sepsis [Recovering/Resolving]
  - Urinary tract infection [Recovering/Resolving]
  - Myelodysplastic syndrome [Unknown]
